FAERS Safety Report 6193821-9 (Version None)
Quarter: 2009Q2

REPORT INFORMATION
  Report Type: 
  Country: None (occurrence: None)
  Receive Date: 20090518
  Receipt Date: 20090505
  Transmission Date: 20091009
  Serious: Yes (Hospitalization, Other)
  Sender: FDA-Public Use
  Company Number: US-AVENTIS-200817580US

PATIENT
  Sex: Female
  Weight: 58.97 kg

DRUGS (14)
  1. KETEK [Suspect]
     Dosage: DOSE: UNK
     Dates: start: 20060901, end: 20060901
  2. VALTREX [Suspect]
     Dosage: DOSE: UNK
     Dates: start: 20060901
  3. ROCEPHIN [Concomitant]
     Dosage: DOSE: UNK
  4. XANAX [Concomitant]
     Dosage: DOSE: UNK
  5. LEXAPRO [Concomitant]
     Dosage: DOSE: UNK
  6. VIT D [Concomitant]
     Dosage: DOSE: UNK
  7. CENTRUM SILVER                     /01292501/ [Concomitant]
     Dosage: DOSE: UNK
  8. CALCIUM [Concomitant]
     Dosage: DOSE: UNK
  9. LIQUIFED [Concomitant]
     Dosage: DOSE: UNK
  10. LORTAB [Concomitant]
     Dosage: DOSE: UNK
  11. LYRICA [Concomitant]
     Dosage: DOSE: UNK
  12. ATACAND [Concomitant]
     Dosage: DOSE: UNK
  13. NEXIUM [Concomitant]
     Dosage: DOSE: UNK
  14. ANALGESICS [Concomitant]
     Dosage: DOSE: UNK

REACTIONS (14)
  - ALANINE AMINOTRANSFERASE INCREASED [None]
  - ASPARTATE AMINOTRANSFERASE INCREASED [None]
  - BLOOD ALKALINE PHOSPHATASE INCREASED [None]
  - CHEST PAIN [None]
  - COLD SWEAT [None]
  - DYSPNOEA [None]
  - ELECTROCARDIOGRAM ST SEGMENT DEPRESSION [None]
  - GAMMA-GLUTAMYLTRANSFERASE INCREASED [None]
  - HEPATITIS FULMINANT [None]
  - HYPERHIDROSIS [None]
  - JAUNDICE [None]
  - NAUSEA [None]
  - OESOPHAGEAL SPASM [None]
  - PYREXIA [None]
